FAERS Safety Report 23718969 (Version 2)
Quarter: 2024Q2

REPORT INFORMATION
  Report Type: Spontaneous
  Country: CN (occurrence: CN)
  Receive Date: 20240408
  Receipt Date: 20240410
  Transmission Date: 20240716
  Serious: Yes (Other)
  Sender: FDA-Public Use
  Company Number: CN-PFIZER INC-PV202400043353

PATIENT
  Age: 39 Year
  Sex: Female

DRUGS (3)
  1. DOXORUBICIN HYDROCHLORIDE [Suspect]
     Active Substance: DOXORUBICIN HYDROCHLORIDE
     Indication: Sarcoma
     Dosage: 60 MG D1 2 CYCLES
     Dates: start: 202209
  2. SINTILIMAB [Suspect]
     Active Substance: SINTILIMAB
     Indication: Sarcoma
     Dosage: 200MG D1, 2 CYCLES
     Dates: start: 202209
  3. IFOSFAMIDE [Suspect]
     Active Substance: IFOSFAMIDE
     Indication: Sarcoma
     Dosage: 2G D1-D3, 2 CYCLES
     Dates: start: 202209

REACTIONS (2)
  - Myelosuppression [Unknown]
  - Pericardial effusion [Unknown]
